FAERS Safety Report 12907839 (Version 4)
Quarter: 2018Q1

REPORT INFORMATION
  Report Type: Spontaneous
  Country: US (occurrence: US)
  Receive Date: 20161103
  Receipt Date: 20180327
  Transmission Date: 20180508
  Serious: Yes (Other)
  Sender: FDA-Public Use
  Company Number: US-PFIZER INC-2016230067

PATIENT
  Age: 67 Year
  Sex: Female
  Weight: 94 kg

DRUGS (19)
  1. PREMARIN [Suspect]
     Active Substance: ESTROGENS, CONJUGATED
     Indication: LIBIDO DECREASED
  2. SYNTHROID [Concomitant]
     Active Substance: LEVOTHYROXINE SODIUM
     Indication: HYPOTHYROIDISM
     Dosage: 125 UG, 1X/DAY
     Dates: start: 2008
  3. OMEPRAZOLE. [Concomitant]
     Active Substance: OMEPRAZOLE
     Indication: GASTROOESOPHAGEAL REFLUX DISEASE
     Dosage: 40 MG, 1X/DAY
  4. BENADRYL [Concomitant]
     Active Substance: DIPHENHYDRAMINE HYDROCHLORIDE
     Indication: HYPERSENSITIVITY
     Dosage: UNK, AS NEEDED
     Dates: start: 2011
  5. BIOTIN [Concomitant]
     Active Substance: BIOTIN
     Indication: ALOPECIA
     Dosage: 10000 IU, 1X/DAY
     Dates: start: 2011
  6. TRIAMTERENE HCTZ [Concomitant]
     Active Substance: HYDROCHLOROTHIAZIDE\TRIAMTERENE
     Indication: VERTIGO
  7. LYRICA [Concomitant]
     Active Substance: PREGABALIN
     Indication: SPINAL COLUMN STENOSIS
     Dosage: 150 MG, 1X/DAY
     Dates: start: 201603
  8. PREMARIN [Suspect]
     Active Substance: ESTROGENS, CONJUGATED
     Indication: VULVOVAGINAL DRYNESS
     Dosage: 2 G, 2X/WEEK
     Route: 067
     Dates: start: 2016, end: 201609
  9. ACETAMINOPHEN. [Concomitant]
     Active Substance: ACETAMINOPHEN
     Indication: OSTEOARTHRITIS
     Dosage: 1000 MG, AS NEEDED (TWO 500MG EVERY FOUR AS NEEDED)
  10. GELATIN [Concomitant]
     Active Substance: GELATIN
     Indication: NAIL DISORDER
     Dosage: 650 MG, DAILY
     Dates: start: 2010
  11. TRIAMTERENE HCTZ [Concomitant]
     Active Substance: HYDROCHLOROTHIAZIDE\TRIAMTERENE
     Indication: FLUID RETENTION
     Dosage: 1 DF, 1X/DAY
  12. IBUPROFEN. [Concomitant]
     Active Substance: IBUPROFEN
     Indication: OSTEOARTHRITIS
     Dosage: AS NEEDED (ONE TO TWO 400MG TABLET, EVERY OTHER FOUR HOURS ALTERNATING WITH PARACETAMOL/TYLENOL)
  13. BIOTIN [Concomitant]
     Active Substance: BIOTIN
     Indication: ANDROGENETIC ALOPECIA
  14. CALCIUM WITH VITAMIN D [Concomitant]
     Active Substance: CALCIUM\VITAMIN D
     Indication: OSTEOPENIA
     Dosage: DAILY (CALCIUM 1200-1700 MG /VITAMIN D 500-800 IU)
     Dates: start: 2002
  15. MECLIZINE HYDROCHLORIDE. [Concomitant]
     Active Substance: MECLIZINE HYDROCHLORIDE
     Dosage: AS NEEDED (25 MG 1-2/DAY TAKE OCCASIONALLY NOW)
  16. IBUPROFEN. [Concomitant]
     Active Substance: IBUPROFEN
     Indication: ARTHRITIS
  17. TRIAMTERENE HCTZ [Concomitant]
     Active Substance: HYDROCHLOROTHIAZIDE\TRIAMTERENE
     Indication: ABDOMINAL DISTENSION
  18. MECLIZINE HYDROCHLORIDE. [Concomitant]
     Active Substance: MECLIZINE HYDROCHLORIDE
     Indication: VERTIGO
     Dosage: 3 OR 4 A DAY
  19. MECLIZINE HYDROCHLORIDE. [Concomitant]
     Active Substance: MECLIZINE HYDROCHLORIDE
     Dosage: 25 MG, AS NEEDED

REACTIONS (9)
  - Vulvovaginal inflammation [Recovered/Resolved]
  - Vulvovaginal pruritus [Recovered/Resolved]
  - Abdominal discomfort [Recovered/Resolved]
  - Reaction to excipient [Unknown]
  - Vulvovaginal swelling [Recovered/Resolved]
  - Swelling [Recovered/Resolved]
  - Vaginal haemorrhage [Recovered/Resolved]
  - Vulvovaginal burning sensation [Recovered/Resolved]
  - Product use issue [Unknown]

NARRATIVE: CASE EVENT DATE: 2016
